FAERS Safety Report 19749925 (Version 2)
Quarter: 2021Q4

REPORT INFORMATION
  Report Type: Spontaneous
  Country: US (occurrence: US)
  Receive Date: 20210826
  Receipt Date: 20211130
  Transmission Date: 20220303
  Serious: No
  Sender: FDA-Public Use
  Company Number: US-AMNEAL PHARMACEUTICALS-2021-AMRX-03136

PATIENT
  Sex: Female

DRUGS (1)
  1. ESTRADIOL TRANSDERMAL SYSTEM [Suspect]
     Active Substance: ESTRADIOL
     Indication: Hormone replacement therapy
     Dosage: UNK
     Route: 062

REACTIONS (7)
  - Paraesthesia [Unknown]
  - Therapeutic product effect incomplete [Unknown]
  - Hot flush [Unknown]
  - Application site pruritus [Unknown]
  - Fluid retention [Unknown]
  - Abdominal distension [Unknown]
  - Product substitution issue [Unknown]
